FAERS Safety Report 5398684-7 (Version None)
Quarter: 2007Q3

REPORT INFORMATION
  Report Type: 
  Country: None (occurrence: None)
  Receive Date: 20070726
  Receipt Date: 20060919
  Transmission Date: 20080115
  Serious: No
  Sender: FDA-Public Use
  Company Number: US-AMGEN-US194305

PATIENT
  Age: 77 Year
  Sex: Female
  Weight: 70.5 kg

DRUGS (7)
  1. EPOGEN [Suspect]
     Indication: DIALYSIS
     Route: 042
     Dates: start: 20050610
  2. COUMADIN [Suspect]
     Route: 065
     Dates: start: 20060717
  3. VENOFER [Concomitant]
     Route: 065
     Dates: start: 20060610
  4. ZEMPLAR [Concomitant]
     Route: 065
     Dates: start: 20060206
  5. LASIX [Concomitant]
     Route: 065
     Dates: start: 20050610
  6. LIPITOR [Concomitant]
     Route: 065
     Dates: start: 20050610
  7. PHOSLO [Concomitant]
     Route: 065
     Dates: start: 20060728

REACTIONS (1)
  - ANAEMIA [None]
